FAERS Safety Report 8491857-6 (Version None)
Quarter: 2012Q3

REPORT INFORMATION
  Report Type: 
  Country: None (occurrence: None)
  Receive Date: 20120706
  Receipt Date: 20110801
  Transmission Date: 20120928
  Serious: No
  Sender: FDA-Public Use
  Company Number: US-GLAXOSMITHKLINE-A0939278A

PATIENT
  Age: 68 Year
  Sex: Male

DRUGS (5)
  1. BLOOD PRESSURE MEDICATION [Concomitant]
  2. PROSTATE MEDICATION [Concomitant]
  3. PLAVIX [Concomitant]
  4. FLOVENT [Suspect]
     Indication: ASTHMA
     Dosage: 2PUFF TWICE PER DAY
     Route: 055
     Dates: start: 20040101
  5. PROAIR HFA [Concomitant]

REACTIONS (2)
  - DRUG ADMINISTRATION ERROR [None]
  - OROPHARYNGEAL DISCOMFORT [None]
